FAERS Safety Report 12288240 (Version 2)
Quarter: 2016Q3

REPORT INFORMATION
  Report Type: Report from Study
  Country: US (occurrence: US)
  Receive Date: 20160420
  Receipt Date: 20160718
  Transmission Date: 20161109
  Serious: No
  Sender: FDA-Public Use
  Company Number: US-ASTRAZENECA-2016SE26413

PATIENT
  Age: 789 Month
  Sex: Female

DRUGS (5)
  1. SYNTHROID [Concomitant]
     Active Substance: LEVOTHYROXINE SODIUM
     Dosage: 40.0G UNKNOWN
  2. TRENTRAL [Concomitant]
     Dosage: 400.0G UNKNOWN
  3. KOMBIGLYZE XR [Suspect]
     Active Substance: METFORMIN HYDROCHLORIDE\SAXAGLIPTIN HYDROCHLORIDE
     Indication: DIABETES MELLITUS
     Dosage: 5/500 AT NIGHT
     Route: 048
     Dates: start: 201106
  4. GLIPIZIDE-METFORMIN [Concomitant]
     Dosage: 5500.0G UNKNOWN
  5. SIMVASTATIN. [Concomitant]
     Active Substance: SIMVASTATIN
     Dosage: 40.0G UNKNOWN

REACTIONS (1)
  - Diabetes mellitus inadequate control [Unknown]

NARRATIVE: CASE EVENT DATE: 201602
